FAERS Safety Report 7010976-4 (Version None)
Quarter: 2010Q3

REPORT INFORMATION
  Report Type: 
  Country: None (occurrence: None)
  Receive Date: 20100923
  Receipt Date: 20081001
  Transmission Date: 20110219
  Serious: No
  Sender: FDA-Public Use
  Company Number: US-WYE-H06206808

PATIENT
  Sex: Female
  Weight: 63.56 kg

DRUGS (2)
  1. PREMARIN [Suspect]
     Indication: VULVOVAGINAL DRYNESS
     Dosage: 0.5 TO 1.0 GRAMS ONCE OR TWICE A WEEK
     Route: 067
     Dates: start: 20070101
  2. SYNTHROID [Concomitant]

REACTIONS (1)
  - URINARY TRACT INFECTION [None]
